FAERS Safety Report 16203787 (Version 1)
Quarter: 2019Q2

REPORT INFORMATION
  Report Type: Report from Study
  Country: CA (occurrence: CA)
  Receive Date: 20190416
  Receipt Date: 20190416
  Transmission Date: 20190711
  Serious: Yes (Death, Other)
  Sender: FDA-Public Use
  Company Number: PHHY2012CA042493

PATIENT
  Age: 88 Year
  Sex: Male

DRUGS (3)
  1. SANDOSTATIN LAR DEPOT [Suspect]
     Active Substance: OCTREOTIDE ACETATE
     Indication: CARCINOID TUMOUR
     Dosage: 20 MG, QMO
     Route: 030
     Dates: start: 20120514
  2. SANDOSTATIN LAR DEPOT [Suspect]
     Active Substance: OCTREOTIDE ACETATE
     Dosage: 30 MG, QMO (EVERY 4 WEEKS)
     Route: 030
     Dates: start: 20140109
  3. SANDOSTATIN LAR DEPOT [Suspect]
     Active Substance: OCTREOTIDE ACETATE
     Dosage: 30 MG, QMO
     Route: 030
     Dates: start: 20120715

REACTIONS (11)
  - Confusional state [Unknown]
  - Blood pressure decreased [Unknown]
  - Blood pressure increased [Unknown]
  - Increased appetite [Unknown]
  - Injection site pain [Unknown]
  - Asthenia [Not Recovered/Not Resolved]
  - Needle issue [Unknown]
  - Death [Fatal]
  - Diarrhoea [Unknown]
  - Cachexia [Not Recovered/Not Resolved]
  - General physical health deterioration [Unknown]

NARRATIVE: CASE EVENT DATE: 20180316
